FAERS Safety Report 10570468 (Version 1)
Quarter: 2014Q4

REPORT INFORMATION
  Report Type: Spontaneous
  Country: US (occurrence: None)
  Receive Date: 20141106
  Receipt Date: 20141106
  Transmission Date: 20150529
  Serious: Yes (Disabling, Other)
  Sender: FDA-Public Use
  Company Number: None

PATIENT
  Age: 65 Year
  Sex: Female

DRUGS (1)
  1. BUPROPION [Suspect]
     Active Substance: BUPROPION
     Indication: DEPRESSION
     Route: 048
     Dates: start: 20140612, end: 20141104

REACTIONS (11)
  - Nightmare [None]
  - Pruritus [None]
  - Insomnia [None]
  - Neuralgia [None]
  - Feeling abnormal [None]
  - Heart rate increased [None]
  - Dyspnoea [None]
  - Hallucination [None]
  - Blood pressure increased [None]
  - Tinnitus [None]
  - Mental disorder [None]

NARRATIVE: CASE EVENT DATE: 20141012
